FAERS Safety Report 15636599 (Version 2)
Quarter: 2018Q4

REPORT INFORMATION
  Report Type: Spontaneous
  Country: JP (occurrence: JP)
  Receive Date: 20181120
  Receipt Date: 20181213
  Transmission Date: 20190205
  Serious: Yes (Death, Other)
  Sender: FDA-Public Use
  Company Number: JP-009507513-1811JPN001081J

PATIENT
  Age: 89 Year
  Sex: Female

DRUGS (8)
  1. BELSOMRA [Suspect]
     Active Substance: SUVOREXANT
     Indication: INSOMNIA
     Dosage: 15 MILLIGRAM, QD
     Route: 048
     Dates: start: 20181023, end: 20181023
  2. BELSOMRA [Suspect]
     Active Substance: SUVOREXANT
     Dosage: 7.5 UNK
     Route: 048
     Dates: start: 20181024, end: 20181027
  3. TELMISARTAN. [Concomitant]
     Active Substance: TELMISARTAN
     Indication: HYPERTENSION
     Dosage: 20 MILLIGRAM, QD
     Route: 048
     Dates: start: 20120821, end: 20181028
  4. RIVASTACH [Concomitant]
     Active Substance: RIVASTIGMINE
     Indication: DEMENTIA ALZHEIMER^S TYPE
     Dosage: 18 MILLIGRAM, QD
     Route: 062
     Dates: start: 20180114, end: 20181028
  5. TSUMURA YOKUKANSANKACHIMPIHANGE EXTRACT GRANULES FOR ETHICAL USE [Concomitant]
     Active Substance: HERBALS
     Indication: INSOMNIA
  6. ALLOPURINOL. [Suspect]
     Active Substance: ALLOPURINOL
     Indication: HYPERURICAEMIA
     Dosage: 50 MILLIGRAM, QD
     Route: 048
     Dates: start: 20181023, end: 20181028
  7. TSUMURA YOKUKANSANKACHIMPIHANGE EXTRACT GRANULES FOR ETHICAL USE [Concomitant]
     Active Substance: HERBALS
     Indication: NEUROSIS
     Dosage: 2.5 GRAM, TID
     Route: 048
     Dates: start: 20180724, end: 20181028
  8. TSUMURA YOKUKANSANKACHIMPIHANGE EXTRACT GRANULES FOR ETHICAL USE [Concomitant]
     Active Substance: HERBALS
     Indication: RESTLESSNESS

REACTIONS (4)
  - Somnolence [Unknown]
  - Feeling abnormal [Unknown]
  - Intentional underdose [Unknown]
  - Acute myocardial infarction [Fatal]

NARRATIVE: CASE EVENT DATE: 20181024
